FAERS Safety Report 5670576-5 (Version None)
Quarter: 2008Q1

REPORT INFORMATION
  Report Type: 
  Country: None (occurrence: None)
  Receive Date: 20080318
  Receipt Date: 20080228
  Transmission Date: 20080703
  Serious: Yes (Death, Hospitalization, Other)
  Sender: FDA-Public Use
  Company Number: GB-AVENTIS-200810620GDDC

PATIENT
  Age: 68 Year
  Sex: Male

DRUGS (9)
  1. GLIBENCLAMIDE [Suspect]
     Dosage: DOSE: UNK
  2. ASPIRIN [Suspect]
     Dosage: DOSE: UNK
  3. RAMIPRIL [Suspect]
     Dosage: DOSE: UNK
  4. DILTIAZEM [Suspect]
     Dosage: DOSE: UNK
  5. METFORMIN HCL [Suspect]
     Indication: DIABETES MELLITUS
  6. NITROGLYCERIN [Suspect]
     Dosage: DOSE: UNK
  7. CLOPIDOGREL [Suspect]
     Dosage: DOSE: UNK
  8. TORSEMIDE [Suspect]
     Dosage: DOSE: UNK
  9. TRIMETAZIDINE [Suspect]
     Dosage: DOSE: UNK

REACTIONS (4)
  - ACUTE MYOCARDIAL INFARCTION [None]
  - CARDIAC ARREST [None]
  - METABOLIC ACIDOSIS [None]
  - RENAL FAILURE ACUTE [None]
